FAERS Safety Report 6742835-6 (Version None)
Quarter: 2010Q2

REPORT INFORMATION
  Report Type: 
  Country: None (occurrence: None)
  Receive Date: 20100525
  Receipt Date: 20100517
  Transmission Date: 20101027
  Serious: Yes (Death, Hospitalization)
  Sender: FDA-Public Use
  Company Number: WAES 1004USA03939

PATIENT
  Age: 36 Year
  Sex: Female
  Weight: 129.2752 kg

DRUGS (18)
  1. CAP VORINOSTAT [Suspect]
     Indication: CHRONIC LYMPHOCYTIC LEUKAEMIA
     Dosage: 200 MG/DAILY /PO
     Route: 048
     Dates: start: 20100329, end: 20100402
  2. FLUDARABINE PHOSPHATE [Suspect]
     Indication: CHRONIC LYMPHOCYTIC LEUKAEMIA
     Dosage: 60 MG/DAILY/IV
     Route: 042
     Dates: start: 20100329, end: 20100331
  3. CYCLOPHOSPHAMIDE [Suspect]
     Indication: CHRONIC LYMPHOCYTIC LEUKAEMIA
     Dosage: 600 MG/DAILY/IV
     Route: 042
     Dates: start: 20100329, end: 20100331
  4. RITUXIMAB [Suspect]
     Indication: CHRONIC LYMPHOCYTIC LEUKAEMIA
     Dosage: 1150 MG 1X/IV
     Route: 042
     Dates: start: 20100329, end: 20100329
  5. ATIVAN [Concomitant]
  6. COMPAZINE [Concomitant]
  7. HUMALOG [Concomitant]
  8. LANTUS [Concomitant]
  9. LEVAQUIN [Concomitant]
  10. VICODIN [Concomitant]
  11. CALCIUM (UNSPECIFIED) + MAGNES [Concomitant]
  12. CYCLOBENZAPRINE HYDROCHLORIDE [Concomitant]
  13. INSULIN [Concomitant]
  14. METFORMIN HCL [Concomitant]
  15. OMEGA-3 MARINE TRIGLYCERIDES [Concomitant]
  16. RESVERATROL [Concomitant]
  17. VITAMIN E [Concomitant]
  18. VITAMINS (UNSPECIFIED) [Concomitant]

REACTIONS (32)
  - ABDOMINAL PAIN UPPER [None]
  - ACUTE HEPATIC FAILURE [None]
  - BLOOD ALBUMIN DECREASED [None]
  - BLOOD SODIUM DECREASED [None]
  - BRAIN HERNIATION [None]
  - CHILLS [None]
  - DIALYSIS [None]
  - DRUG HYPERSENSITIVITY [None]
  - DYSPNOEA [None]
  - HAEMATOCRIT DECREASED [None]
  - HAEMOGLOBIN DECREASED [None]
  - HEADACHE [None]
  - HYPOVENTILATION [None]
  - HYPOXIA [None]
  - LEUKOPENIA [None]
  - LIP SWELLING [None]
  - NAUSEA [None]
  - NEUTROPENIA [None]
  - OROPHARYNGEAL PAIN [None]
  - POST PROCEDURAL COMPLICATION [None]
  - PRURITUS [None]
  - PURULENCE [None]
  - RASH [None]
  - RED BLOOD CELL COUNT DECREASED [None]
  - RENAL FAILURE [None]
  - RENAL TUBULAR NECROSIS [None]
  - RESPIRATORY FAILURE [None]
  - RHINORRHOEA [None]
  - SEPTIC SHOCK [None]
  - THROMBOCYTOPENIA [None]
  - URTICARIA [None]
  - VOMITING [None]
